FAERS Safety Report 6690590-0 (Version None)
Quarter: 2010Q2

REPORT INFORMATION
  Report Type: 
  Country: None (occurrence: None)
  Receive Date: 20100421
  Receipt Date: 20100414
  Transmission Date: 20101027
  Serious: Yes (Disabling)
  Sender: FDA-Public Use
  Company Number: B0621419A

PATIENT
  Sex: Male

DRUGS (6)
  1. PAXIL [Suspect]
     Indication: NEUROSIS
     Route: 048
     Dates: end: 20071220
  2. MEILAX [Suspect]
     Indication: NEUROSIS
     Route: 048
  3. DEPAS [Suspect]
     Indication: NEUROSIS
     Route: 048
  4. NORVASC [Suspect]
     Indication: HYPERTENSION
     Dosage: 2.5MG PER DAY
     Route: 048
     Dates: end: 20080313
  5. MENESIT [Concomitant]
     Indication: PARKINSONISM
     Dosage: 300MG PER DAY
     Route: 048
     Dates: end: 20090507
  6. SYMMETREL [Concomitant]
     Indication: PARKINSONISM
     Dosage: 100MG PER DAY
     Route: 048
     Dates: end: 20090507

REACTIONS (1)
  - PARKINSONISM [None]
